FAERS Safety Report 9685503 (Version 1)
Quarter: 2013Q4

REPORT INFORMATION
  Report Type: Spontaneous
  Country: GB (occurrence: GB)
  Receive Date: 20131113
  Receipt Date: 20131113
  Transmission Date: 20140711
  Serious: Yes (Other)
  Sender: FDA-Public Use
  Company Number: GB-BAYER-2013-137095

PATIENT
  Sex: Male
  Weight: 2.26 kg

DRUGS (2)
  1. ACETYLSALICYLIC ACID({=100 MG) [Suspect]
     Route: 064
  2. ENOXAPARIN [Concomitant]
     Route: 064

REACTIONS (3)
  - Foetal exposure during pregnancy [None]
  - Premature baby [None]
  - Low birth weight baby [None]
